FAERS Safety Report 6785087-3 (Version None)
Quarter: 2010Q2

REPORT INFORMATION
  Report Type: 
  Country: None (occurrence: None)
  Receive Date: 20100622
  Receipt Date: 20100617
  Transmission Date: 20101027
  Serious: Yes (Hospitalization)
  Sender: FDA-Public Use
  Company Number: US-AMGEN-KDC410032

PATIENT
  Age: 66 Year
  Sex: Female
  Weight: 117.7 kg

DRUGS (11)
  1. PANITUMUMAB [Suspect]
     Indication: PANCREATIC CARCINOMA
     Route: 042
     Dates: start: 20100215
  2. TARCEVA [Suspect]
     Route: 048
     Dates: start: 20100215
  3. GEMZAR [Suspect]
     Route: 042
     Dates: start: 20100215
  4. LOMOTIL [Concomitant]
  5. GLIMEPIRIDE [Concomitant]
     Route: 048
     Dates: start: 20080601
  6. METFORMIN [Concomitant]
     Route: 048
     Dates: start: 20080601
  7. LISINOPRIL [Concomitant]
     Route: 048
     Dates: start: 20080601
  8. AUGMENTIN '125' [Concomitant]
     Dates: start: 20100315
  9. LOMOTIL [Concomitant]
     Route: 048
     Dates: start: 20100315
  10. MEDROL [Concomitant]
     Route: 048
     Dates: start: 20100322
  11. TUSSIONEX [Concomitant]
     Route: 048
     Dates: start: 20100326

REACTIONS (26)
  - ALANINE AMINOTRANSFERASE INCREASED [None]
  - ASPARTATE AMINOTRANSFERASE INCREASED [None]
  - BLOOD ALKALINE PHOSPHATASE INCREASED [None]
  - BLOOD BILIRUBIN INCREASED [None]
  - BLOOD CALCIUM DECREASED [None]
  - BLOOD SODIUM DECREASED [None]
  - BLOOD UREA INCREASED [None]
  - DEHYDRATION [None]
  - DIARRHOEA [None]
  - DYSPNOEA [None]
  - ESCHERICHIA URINARY TRACT INFECTION [None]
  - FATIGUE [None]
  - HAEMATOCRIT DECREASED [None]
  - HAEMOGLOBIN DECREASED [None]
  - HYPOPHAGIA [None]
  - HYPOTENSION [None]
  - INTERNATIONAL NORMALISED RATIO INCREASED [None]
  - LABORATORY TEST INTERFERENCE [None]
  - MEAN CELL VOLUME INCREASED [None]
  - PLATELET COUNT DECREASED [None]
  - PROTHROMBIN TIME PROLONGED [None]
  - RED BLOOD CELL COUNT DECREASED [None]
  - RED BLOOD CELL MORPHOLOGY ABNORMAL [None]
  - SYNCOPE [None]
  - TACHYCARDIA [None]
  - WHITE BLOOD CELL COUNT DECREASED [None]
